FAERS Safety Report 10581211 (Version 1)
Quarter: 2014Q4

REPORT INFORMATION
  Report Type: Spontaneous
  Country: DE (occurrence: None)
  Receive Date: 20141110
  Receipt Date: 20141110
  Transmission Date: 20150529
  Serious: Yes (Hospitalization, Other)
  Sender: FDA-Public Use
  Company Number: VAL_03577_2014

PATIENT
  Age: 1 Day
  Sex: Male
  Weight: 2.9 kg

DRUGS (2)
  1. FOLSAEURE [Concomitant]
     Active Substance: FOLIC ACID
  2. METOPROLOL (METOPROLOL-METOPROLOL TARTRATE) [Suspect]
     Active Substance: METOPROLOL
     Indication: MATERNAL EXPOSURE DURING PREGNANCY
     Route: 064
     Dates: start: 20121115, end: 20130810

REACTIONS (5)
  - Transverse presentation [None]
  - Maternal drugs affecting foetus [None]
  - Hypoglycaemia neonatal [None]
  - Caesarean section [None]
  - Placental insufficiency [None]
